FAERS Safety Report 7330325-1 (Version None)
Quarter: 2011Q1

REPORT INFORMATION
  Report Type: 
  Country: None (occurrence: None)
  Receive Date: 20110304
  Receipt Date: 20110221
  Transmission Date: 20110831
  Serious: Yes (Death, Other)
  Sender: FDA-Public Use
  Company Number: US-PAR PHARMACEUTICAL, INC-2011SCPR002720

PATIENT
  Age: 47 Year
  Sex: Female

DRUGS (4)
  1. DEXAMETHASONE [Suspect]
     Indication: GLIOBLASTOMA MULTIFORME
     Dosage: UNK
     Route: 065
  2. DEXAMETHASONE [Suspect]
     Dosage: 1 MG, OD
     Route: 048
  3. BEVACIZUMAB [Suspect]
     Indication: GLIOBLASTOMA MULTIFORME
     Dosage: 10 MG/KG, EVERY 2 WEEKS
     Route: 065
  4. TEMOZOLOMIDE [Suspect]
     Indication: GLIOBLASTOMA MULTIFORME
     Dosage: 200 MG/M^2 FOR 5 DAYS OF A 28 DAY CYCLE
     Route: 065

REACTIONS (6)
  - SKIN STRIAE [None]
  - CUSHINGOID [None]
  - SKIN ULCER [None]
  - DISEASE PROGRESSION [None]
  - MYOPATHY [None]
  - DEATH [None]
